FAERS Safety Report 4398276-2 (Version None)
Quarter: 2004Q3

REPORT INFORMATION
  Report Type: 
  Country: None (occurrence: None)
  Receive Date: 20040712
  Receipt Date: 20040701
  Transmission Date: 20050211
  Serious: Yes (Other)
  Sender: FDA-Public Use
  Company Number: 2004-07-0019

PATIENT
  Age: 24 Year
  Sex: Female

DRUGS (2)
  1. CELESTONE CHRONODOSE  INJECTABLE SOLUTION ^LIKE CELESTONE SOLUSPAN^ [Suspect]
     Indication: SYNOVITIS
     Dosage: 5.7MG/1ML
     Dates: start: 20040625, end: 20040625
  2. LIDOCAINE [Suspect]
     Indication: SYNOVITIS
     Dosage: 1%
     Dates: start: 20040625, end: 20040625

REACTIONS (4)
  - BLUE TOE SYNDROME [None]
  - HYPOAESTHESIA [None]
  - PRURITUS [None]
  - VASCULITIS [None]
